FAERS Safety Report 7780058-2 (Version None)
Quarter: 2011Q3

REPORT INFORMATION
  Report Type: 
  Country: None (occurrence: None)
  Receive Date: 20110927
  Receipt Date: 20110419
  Transmission Date: 20111222
  Serious: No
  Sender: FDA-Public Use
  Company Number: US-ASTRAZENECA-2011SE23536

PATIENT
  Age: 58 Year
  Sex: Female
  Weight: 108.4 kg

DRUGS (8)
  1. MEDROXYPROGESTERONE [Concomitant]
  2. HYDROCHLOROTHIAZIDE [Concomitant]
  3. WELLBUTRIN [Concomitant]
  4. METOPROLOL TARTRATE [Concomitant]
  5. SEROQUEL XR [Suspect]
     Indication: BIPOLAR DISORDER
     Route: 048
  6. ESTROPIPATE [Concomitant]
     Dosage: 0.625
  7. SEROQUEL XR [Suspect]
     Route: 048
  8. SEROQUEL XR [Suspect]
     Route: 048

REACTIONS (10)
  - DEPRESSION [None]
  - IMPAIRED SELF-CARE [None]
  - DISABILITY [None]
  - ABNORMAL BEHAVIOUR [None]
  - DRUG INTOLERANCE [None]
  - HYPERSOMNIA [None]
  - DRUG DOSE OMISSION [None]
  - INSOMNIA [None]
  - INCORRECT DOSE ADMINISTERED [None]
  - DISSOCIATION [None]
